FAERS Safety Report 18567278 (Version 1)
Quarter: 2020Q4

REPORT INFORMATION
  Report Type: Report from Study
  Country: US (occurrence: US)
  Receive Date: 20201201
  Receipt Date: 20201201
  Transmission Date: 20210114
  Serious: Yes (Hospitalization)
  Sender: FDA-Public Use
  Company Number: US-SEATTLE GENETICS-2020SGN04836

PATIENT
  Sex: Female

DRUGS (2)
  1. TUCATINIB [Suspect]
     Active Substance: TUCATINIB
     Indication: BREAST CANCER FEMALE
     Route: 048
  2. CAPECITABINE. [Suspect]
     Active Substance: CAPECITABINE
     Indication: BREAST CANCER FEMALE
     Route: 048

REACTIONS (3)
  - Kidney infection [Unknown]
  - Cancer surgery [Not Recovered/Not Resolved]
  - Diarrhoea [Unknown]
